FAERS Safety Report 6332869-8 (Version None)
Quarter: 2009Q3

REPORT INFORMATION
  Report Type: 
  Country: None (occurrence: None)
  Receive Date: 20090828
  Receipt Date: 20090819
  Transmission Date: 20100115
  Serious: Yes (Hospitalization)
  Sender: FDA-Public Use
  Company Number: CA-ABBOTT-09P-028-0592504-00

PATIENT
  Age: 14 Year
  Sex: Male

DRUGS (5)
  1. LEVOTHYROXINE [Suspect]
     Indication: THYROIDITIS
     Dates: start: 20060101
  2. LEVOTHYROXINE [Suspect]
     Dates: start: 20070101
  3. LEVOTHYROXINE [Suspect]
     Dates: start: 20070101
  4. LEVOTHYROXINE [Suspect]
     Dates: start: 20080101
  5. LEVOTHYROXINE [Suspect]

REACTIONS (1)
  - ADRENAL INSUFFICIENCY [None]
